FAERS Safety Report 7243647-X (Version None)
Quarter: 2011Q1

REPORT INFORMATION
  Report Type: 
  Country: None (occurrence: None)
  Receive Date: 20110125
  Receipt Date: 20110119
  Transmission Date: 20110831
  Serious: Yes (Hospitalization)
  Sender: FDA-Public Use
  Company Number: PHHY2009IR39541

PATIENT
  Age: 28 Year
  Sex: Female

DRUGS (1)
  1. CARBAMAZEPINE [Suspect]
     Indication: EPILEPSY
     Dosage: 200 MG, BID

REACTIONS (13)
  - SLOW RESPONSE TO STIMULI [None]
  - PAPILLOEDEMA [None]
  - NAUSEA [None]
  - LOSS OF CONSCIOUSNESS [None]
  - CONFUSIONAL STATE [None]
  - CEREBRAL VENOUS THROMBOSIS [None]
  - GRAND MAL CONVULSION [None]
  - LETHARGY [None]
  - SOMNOLENCE [None]
  - OLIGODENDROGLIOMA [None]
  - SPEECH DISORDER [None]
  - DRUG EXPOSURE DURING PREGNANCY [None]
  - HEADACHE [None]
